FAERS Safety Report 7717126-7 (Version None)
Quarter: 2011Q3

REPORT INFORMATION
  Report Type: 
  Country: None (occurrence: None)
  Receive Date: 20110826
  Receipt Date: 20110826
  Transmission Date: 20111222
  Serious: Yes (Hospitalization)
  Sender: FDA-Public Use
  Company Number: None

PATIENT
  Sex: Female
  Weight: 48 kg

DRUGS (2)
  1. TAXOL [Suspect]
     Dosage: 254 MG
  2. CARBOPLATIN [Suspect]
     Dosage: 540 MG

REACTIONS (5)
  - ANAEMIA [None]
  - NECROSIS [None]
  - VAGINAL DISORDER [None]
  - DEHYDRATION [None]
  - BLOOD CREATININE INCREASED [None]
